FAERS Safety Report 12677408 (Version 1)
Quarter: 2016Q3

REPORT INFORMATION
  Report Type: Spontaneous
  Country: BR (occurrence: BR)
  Receive Date: 20160823
  Receipt Date: 20160823
  Transmission Date: 20161109
  Serious: Yes (Disabling, Other)
  Sender: FDA-Public Use
  Company Number: BR-ELI_LILLY_AND_COMPANY-BR201608007081

PATIENT
  Sex: Male

DRUGS (21)
  1. VITAMIN B COMPLEX [Concomitant]
     Active Substance: CYANOCOBALAMIN\DEXPANTHENOL\NIACINAMIDE\PYRIDOXINE HYDROCHLORIDE\RIBOFLAVIN 5^-PHOSPHATE SODIUM\THIAMINE HYDROCHLORIDE\VITAMIN B COMPLEX
     Dosage: 1 DF, TID
     Route: 048
     Dates: start: 20160704
  2. HUMALOG [Suspect]
     Active Substance: INSULIN LISPRO
     Dosage: 6 IU, AT DINNER
     Route: 058
     Dates: start: 20120507
  3. HUMALOG [Suspect]
     Active Substance: INSULIN LISPRO
     Dosage: 4 IU, BEFORE LUNCH
     Route: 058
     Dates: start: 20160802
  4. LANTUS [Concomitant]
     Active Substance: INSULIN GLARGINE
     Dosage: 36 IU, QD
     Route: 058
     Dates: start: 20130618
  5. HUMALOG [Suspect]
     Active Substance: INSULIN LISPRO
     Indication: TYPE 2 DIABETES MELLITUS
     Dosage: UNK, UNKNOWN
     Route: 058
  6. HUMALOG [Suspect]
     Active Substance: INSULIN LISPRO
     Dosage: 4 IU, AT DINNER
     Route: 058
     Dates: start: 20120315
  7. HUMALOG [Suspect]
     Active Substance: INSULIN LISPRO
     Dosage: 8 IU, AT BREAKFAST
     Route: 058
     Dates: start: 20120507
  8. HUMALOG [Suspect]
     Active Substance: INSULIN LISPRO
     Dosage: 4 IU, BEFORE BREAKFAST
     Route: 058
     Dates: start: 20160802
  9. LANTUS [Concomitant]
     Active Substance: INSULIN GLARGINE
     Dosage: 30 IU, EACH MORNING
     Route: 058
     Dates: start: 20160802
  10. TIAMINA [Concomitant]
     Dosage: 1 DF, EACH MORNING
     Route: 048
     Dates: start: 20160704
  11. ESOMEPRAZOLE [Concomitant]
     Active Substance: ESOMEPRAZOLE
     Dosage: UNK, UNKNOWN
     Route: 065
  12. HUMALOG [Suspect]
     Active Substance: INSULIN LISPRO
     Dosage: 8 IU, QD
     Route: 058
     Dates: start: 20130618
  13. HUMALOG [Suspect]
     Active Substance: INSULIN LISPRO
     Dosage: 4 IU, AT LUNCH
     Route: 058
     Dates: start: 20120315
  14. HUMALOG [Suspect]
     Active Substance: INSULIN LISPRO
     Dosage: 6 IU, AT LUNCH
     Route: 058
     Dates: start: 20120507
  15. VITAMIN B COMPLEX [Concomitant]
     Active Substance: CYANOCOBALAMIN\DEXPANTHENOL\NIACINAMIDE\PYRIDOXINE HYDROCHLORIDE\RIBOFLAVIN 5^-PHOSPHATE SODIUM\THIAMINE HYDROCHLORIDE\VITAMIN B COMPLEX
     Dosage: 1 DF, TID
     Route: 048
     Dates: start: 20120507
  16. NEUTROFER [Concomitant]
     Active Substance: FERROUS BISGLYCINATE
     Dosage: 1 DF, AFTER LUNCH
     Route: 048
     Dates: start: 20160704
  17. LASIX [Concomitant]
     Active Substance: FUROSEMIDE
     Dosage: 1 DF, EACH MORNING
     Route: 048
     Dates: start: 20160704
  18. LANTUS [Concomitant]
     Active Substance: INSULIN GLARGINE
     Indication: TYPE 2 DIABETES MELLITUS
     Dosage: 25 IU, EACH MORNING
     Route: 058
     Dates: start: 20120315
  19. ADDERA D3 [Concomitant]
     Active Substance: CHOLECALCIFEROL
     Dosage: 1 DF, WEEKLY (1/W)
     Route: 048
     Dates: start: 20160704
  20. HUMALOG [Suspect]
     Active Substance: INSULIN LISPRO
     Dosage: 4 IU, AT BREAKFAST
     Route: 058
     Dates: start: 20120315
  21. LANTUS [Concomitant]
     Active Substance: INSULIN GLARGINE
     Dosage: 34 IU, EACH MORNING
     Route: 058
     Dates: start: 20120507

REACTIONS (3)
  - Seizure [Unknown]
  - Blood glucose fluctuation [Unknown]
  - Accident at work [Unknown]
